FAERS Safety Report 9192854 (Version 2)
Quarter: 2013Q2

REPORT INFORMATION
  Report Type: Spontaneous
  Country: US (occurrence: US)
  Receive Date: 20130327
  Receipt Date: 20130426
  Transmission Date: 20140414
  Serious: Yes (Disabling, Other)
  Sender: FDA-Public Use
  Company Number: US-BRISTOL-MYERS SQUIBB COMPANY-18700963

PATIENT
  Age: 52 Year
  Sex: Female

DRUGS (3)
  1. IXEMPRA FOR INJ [Suspect]
     Indication: BREAST CANCER
     Dosage: LAST DOSE:11MAR13?DURATION 3.5MONTHS
     Route: 042
     Dates: start: 20121126
  2. ZOFRAN [Concomitant]
     Indication: PREMEDICATION
  3. BENADRYL [Concomitant]
     Indication: PREMEDICATION

REACTIONS (1)
  - Hepatic cirrhosis [Unknown]
